FAERS Safety Report 14605086 (Version 1)
Quarter: 2018Q1

REPORT INFORMATION
  Report Type: Spontaneous
  Country: US (occurrence: US)
  Receive Date: 20180306
  Receipt Date: 20180306
  Transmission Date: 20180509
  Serious: Yes (Other)
  Sender: FDA-Public Use
  Company Number: None

PATIENT
  Age: 82 Year
  Sex: Male

DRUGS (1)
  1. EYLEA [Suspect]
     Active Substance: AFLIBERCEPT
     Indication: MACULAR DEGENERATION
     Dosage: ?          OTHER FREQUENCY:MONTHLY;?
     Route: 031
     Dates: end: 20180213

REACTIONS (1)
  - Endophthalmitis [None]

NARRATIVE: CASE EVENT DATE: 20180213
